FAERS Safety Report 4277125-7 (Version None)
Quarter: 2004Q1

REPORT INFORMATION
  Report Type: 
  Country: None (occurrence: None)
  Receive Date: 20040120
  Receipt Date: 20040107
  Transmission Date: 20041129
  Serious: Yes (Hospitalization)
  Sender: FDA-Public Use
  Company Number: 163-20785-04010245

PATIENT
  Age: 68 Year
  Sex: Male

DRUGS (13)
  1. THALOMID [Suspect]
     Indication: MULTIPLE MYELOMA
     Dosage: SEE IMAGE, ORAL
     Route: 048
     Dates: start: 20030214
  2. THALOMID [Suspect]
     Indication: MULTIPLE MYELOMA
     Dosage: SEE IMAGE, ORAL
     Route: 048
     Dates: start: 20030424
  3. THALOMID [Suspect]
     Indication: MULTIPLE MYELOMA
     Dosage: SEE IMAGE, ORAL
     Route: 048
     Dates: start: 20030722
  4. THALOMID [Suspect]
     Indication: MULTIPLE MYELOMA
     Dosage: SEE IMAGE, ORAL
     Route: 048
     Dates: start: 20030808
  5. DEXAMETHASONE [Suspect]
     Indication: MULTIPLE MYELOMA
     Dosage: 20 MG, D 1-4 EVERY 3 WEEKS, ORAL
     Route: 048
     Dates: start: 20030214
  6. DEXAMETHASONE [Suspect]
     Indication: MULTIPLE MYELOMA
     Dosage: 20 MG, D 1-4 EVERY 3 WEEKS, ORAL
     Route: 048
     Dates: start: 20030424
  7. DEXAMETHASONE [Suspect]
     Indication: MULTIPLE MYELOMA
     Dosage: 20 MG, D 1-4 EVERY 3 WEEKS, ORAL
     Route: 048
     Dates: start: 20030722
  8. DEXAMETHASONE [Suspect]
     Indication: MULTIPLE MYELOMA
     Dosage: 20 MG, D 1-4 EVERY 3 WEEKS, ORAL
     Route: 048
     Dates: start: 20030808
  9. CISPLATIN [Concomitant]
  10. ADRIAMYCIN PFS [Concomitant]
  11. CYCLOPHOSPHAMIDE [Concomitant]
  12. ETOPOSIDE [Concomitant]
  13. MELPHALAN (MELPHALAN) [Concomitant]

REACTIONS (4)
  - ASPERGILLOSIS [None]
  - LUNG DISORDER [None]
  - PYREXIA [None]
  - STEM CELL TRANSPLANT [None]
